FAERS Safety Report 7638779-8 (Version None)
Quarter: 2011Q3

REPORT INFORMATION
  Report Type: 
  Country: None (occurrence: None)
  Receive Date: 20110727
  Receipt Date: 20110715
  Transmission Date: 20111222
  Serious: Yes (Hospitalization)
  Sender: FDA-Public Use
  Company Number: CA-ROCHE-790526

PATIENT
  Sex: Female

DRUGS (8)
  1. FOLIC ACID [Concomitant]
  2. BEVACIZUMAB [Suspect]
     Route: 042
  3. SERTRALINE HYDROCHLORIDE [Concomitant]
     Dosage: DRUG NAME: SERTALINE
  4. CALCIUM ACETATE [Concomitant]
  5. HYDROCONTIN [Concomitant]
  6. LACTULOSE [Concomitant]
  7. LEVETIRACETAM [Concomitant]
  8. VITAMIN D [Concomitant]
     Dosage: DRUG NAME: VITAMIN D

REACTIONS (1)
  - GALLBLADDER DISORDER [None]
